FAERS Safety Report 15974189 (Version 1)
Quarter: 2019Q1

REPORT INFORMATION
  Report Type: Spontaneous
  Country: US (occurrence: US)
  Receive Date: 20190218
  Receipt Date: 20190218
  Transmission Date: 20190418
  Serious: No
  Sender: FDA-Public Use
  Company Number: US-TEVA-2019-US-997701

PATIENT

DRUGS (1)
  1. COPAXONE [Suspect]
     Active Substance: GLATIRAMER ACETATE
     Dosage: FORM STRENGTH : UNKNOWN
     Route: 065

REACTIONS (5)
  - Back pain [Unknown]
  - Adverse event [Unknown]
  - Abdominal pain upper [Unknown]
  - Impaired healing [Unknown]
  - Abdominal discomfort [Unknown]
